FAERS Safety Report 17082822 (Version 2)
Quarter: 2020Q1

REPORT INFORMATION
  Report Type: Report from Study
  Country: BR (occurrence: BR)
  Receive Date: 20191127
  Receipt Date: 20200109
  Transmission Date: 20200409
  Serious: Yes (Other)
  Sender: FDA-Public Use
  Company Number: NVSC2019BR047064

PATIENT
  Sex: Female
  Weight: 56 kg

DRUGS (3)
  1. COSENTYX [Suspect]
     Active Substance: SECUKINUMAB
     Indication: PSORIASIS
     Dosage: 2 DF(150MG), QMO
     Route: 065
     Dates: start: 20181119, end: 201908
  2. TAPAZOL [Concomitant]
     Indication: HYPERTHYROIDISM
     Dosage: 5 MG, QD
     Route: 048
  3. COSENTYX [Suspect]
     Active Substance: SECUKINUMAB
     Dosage: 2 DF(150MG), QMO
     Route: 058
     Dates: start: 201911

REACTIONS (3)
  - Tuberculin test positive [Not Recovered/Not Resolved]
  - Decreased immune responsiveness [Recovered/Resolved]
  - Tuberculosis [Not Recovered/Not Resolved]

NARRATIVE: CASE EVENT DATE: 2019
